FAERS Safety Report 7335510-0 (Version None)
Quarter: 2011Q1

REPORT INFORMATION
  Report Type: 
  Country: None (occurrence: None)
  Receive Date: 20110301
  Receipt Date: 20110301
  Transmission Date: 20110831
  Serious: Yes (Hospitalization, Disabling, Other)
  Sender: FDA-Public Use
  Company Number: None

PATIENT
  Sex: Female

DRUGS (2)
  1. ASPIRIN [Concomitant]
  2. CRESTOR [Suspect]
     Indication: HYPERCHOLESTEROLAEMIA
     Dosage: ONE DAILY
     Dates: start: 20090301, end: 20090517

REACTIONS (7)
  - GROIN PAIN [None]
  - ARTHRALGIA [None]
  - PAINFUL DEFAECATION [None]
  - VULVOVAGINAL PAIN [None]
  - PROCTALGIA [None]
  - BACK PAIN [None]
  - DYSURIA [None]
